FAERS Safety Report 18021341 (Version 1)
Quarter: 2020Q3

REPORT INFORMATION
  Report Type: Spontaneous
  Country: FR (occurrence: FR)
  Receive Date: 20200714
  Receipt Date: 20200714
  Transmission Date: 20201103
  Serious: Yes (Hospitalization)
  Sender: FDA-Public Use
  Company Number: FR-TEVA-2020-FR-1799579

PATIENT
  Age: 92 Year
  Sex: Male
  Weight: 60 kg

DRUGS (8)
  1. CEFOTAXIME BASE [Suspect]
     Active Substance: CEFOTAXIME SODIUM
     Indication: PYELONEPHRITIS
     Route: 042
     Dates: start: 20200531, end: 20200531
  2. KARDEGIC [Concomitant]
     Active Substance: ASPIRIN DL-LYSINE
     Indication: PRODUCT USED FOR UNKNOWN INDICATION
  3. COUMADINE [Concomitant]
     Active Substance: WARFARIN SODIUM
     Indication: PRODUCT USED FOR UNKNOWN INDICATION
  4. LEVOFLOXACINE [Suspect]
     Active Substance: LEVOFLOXACIN
     Indication: PYELONEPHRITIS
     Route: 048
     Dates: start: 20200524, end: 20200531
  5. XENETIX [Suspect]
     Active Substance: IOBITRIDOL
     Indication: COMPUTERISED TOMOGRAM
     Route: 042
     Dates: start: 20200529, end: 20200529
  6. LASILIX [Concomitant]
     Active Substance: FUROSEMIDE
     Indication: PRODUCT USED FOR UNKNOWN INDICATION
  7. DISCOTRINE [Concomitant]
     Active Substance: NITROGLYCERIN
     Indication: PRODUCT USED FOR UNKNOWN INDICATION
  8. IKOREL [Concomitant]
     Active Substance: NICORANDIL
     Indication: PRODUCT USED FOR UNKNOWN INDICATION

REACTIONS (1)
  - Drug reaction with eosinophilia and systemic symptoms [Recovered/Resolved]

NARRATIVE: CASE EVENT DATE: 20200531
